FAERS Safety Report 20755442 (Version 2)
Quarter: 2022Q2

REPORT INFORMATION
  Report Type: Spontaneous
  Country: IR (occurrence: IR)
  Receive Date: 20220427
  Receipt Date: 20220509
  Transmission Date: 20220721
  Serious: Yes (Death, Hospitalization, Other)
  Sender: FDA-Public Use
  Company Number: IR-LUPIN PHARMACEUTICALS INC.-2022-06131

PATIENT
  Age: 144 Month
  Sex: Male

DRUGS (1)
  1. TRAMADOL [Suspect]
     Active Substance: TRAMADOL
     Indication: Product used for unknown indication
     Dosage: UNK (SELF-POISONING)
     Route: 065
     Dates: start: 2011

REACTIONS (2)
  - Poisoning deliberate [Fatal]
  - Completed suicide [Fatal]

NARRATIVE: CASE EVENT DATE: 20110101
